FAERS Safety Report 4658656-4 (Version None)
Quarter: 2005Q2

REPORT INFORMATION
  Report Type: 
  Country: None (occurrence: None)
  Receive Date: 20050510
  Receipt Date: 20050510
  Transmission Date: 20051028
  Serious: Yes (Other)
  Sender: FDA-Public Use
  Company Number: None

PATIENT
  Age: 21 Year
  Sex: Male

DRUGS (14)
  1. MEDROXYPROGESTERONE [Suspect]
     Indication: WEIGHT DECREASED
     Dosage: 400 MG   QD   OTHER
     Route: 050
     Dates: start: 20050308, end: 20050313
  2. LINEZOLID   600 MG [Suspect]
     Indication: ENTEROCOCCAL INFECTION
     Dosage: 600 MG  Q12H INTRAVENOU
     Route: 042
     Dates: start: 20050308, end: 20050323
  3. LINEZOLID   600 MG [Suspect]
     Indication: SEPSIS
     Dosage: 600 MG  Q12H INTRAVENOU
     Route: 042
     Dates: start: 20050308, end: 20050323
  4. COLACE [Concomitant]
  5. PREVACID [Concomitant]
  6. ACCUZYME [Concomitant]
  7. LOPRESSOR [Concomitant]
  8. CEFIPIME [Concomitant]
  9. AMLODIPINE [Concomitant]
  10. WARFARIN [Concomitant]
  11. TORADOL [Concomitant]
  12. TYLENOL [Concomitant]
  13. ATROVENT/PROVENTIL [Concomitant]
  14. LEVITERACITAM [Concomitant]

REACTIONS (2)
  - ALANINE AMINOTRANSFERASE INCREASED [None]
  - LIVER FUNCTION TEST ABNORMAL [None]
